FAERS Safety Report 9302135 (Version 2)
Quarter: 2013Q2

REPORT INFORMATION
  Report Type: Spontaneous
  Country: NL (occurrence: NL)
  Receive Date: 20130522
  Receipt Date: 20130628
  Transmission Date: 20140414
  Serious: Yes (Life-Threatening, Hospitalization)
  Sender: FDA-Public Use
  Company Number: NL-B.I. PHARMACEUTICALS,INC./RIDGEFIELD-2013-NL-00397NL

PATIENT
  Sex: Male

DRUGS (2)
  1. PRADAXA [Suspect]
     Indication: ATRIAL FIBRILLATION
  2. ANTIHYPERTENSIVES [Concomitant]

REACTIONS (3)
  - Fall [Recovered/Resolved]
  - Arterial haemorrhage [Recovered/Resolved]
  - Convulsion [Recovered/Resolved]
